FAERS Safety Report 18036126 (Version 1)
Quarter: 2020Q3

REPORT INFORMATION
  Report Type: Spontaneous
  Country: FR (occurrence: FR)
  Receive Date: 20200717
  Receipt Date: 20200717
  Transmission Date: 20201103
  Serious: Yes (Hospitalization)
  Sender: FDA-Public Use
  Company Number: FR-CADILA HEALTHCARE LIMITED-FR-ZYDUS-024947

PATIENT

DRUGS (9)
  1. CIRCADIN [Concomitant]
     Active Substance: MELATONIN
     Indication: INSOMNIA
     Dosage: 2 MILLIGRAM,(INTERVAL :1 DAYS)
     Route: 048
     Dates: start: 2016
  2. CETIRIZINE [Concomitant]
     Active Substance: CETIRIZINE HYDROCHLORIDE
     Indication: HYPERSENSITIVITY
     Dosage: 10 MILLIGRAM,1?0?0,(INTERVAL :1 DAYS)
     Route: 048
     Dates: start: 2016
  3. TRANXENE [Concomitant]
     Active Substance: CLORAZEPATE DIPOTASSIUM
     Indication: ANXIETY
     Dosage: 40 MILLIGRAM,20 MG CAPSULE,(INTERVAL :1 DAYS)
     Route: 048
     Dates: start: 2016
  4. ATARAX [Concomitant]
     Active Substance: HYDROXYZINE HYDROCHLORIDE
     Indication: INSOMNIA
     Dosage: 75 MILLIGRAM,1?0?2? 25 MG, SCORED FILM?COATED TABLET,(INTERVAL :1 DAYS)
     Route: 048
     Dates: start: 2015
  5. RISPERIDONE. [Suspect]
     Active Substance: RISPERIDONE
     Indication: PSYCHOTIC DISORDER
     Dosage: 6 MILLIGRAM,1?1?1,(INTERVAL :1 DAYS)
     Route: 048
     Dates: start: 2007, end: 20180307
  6. DEXTROMETHORPHANE (BROMHYDRATE DE) [Concomitant]
     Active Substance: DEXTROMETHORPHAN HYDROBROMIDE
     Indication: PRODUCT USED FOR UNKNOWN INDICATION
     Dosage: 210 MILLIGRAM,2?3?2? 30 MG FILM?COATED TABLETS,(INTERVAL :1 DAYS)
     Route: 048
     Dates: start: 2007
  7. LOXAPAC [Suspect]
     Active Substance: LOXAPINE
     Indication: PSYCHOTIC DISORDER
     Dosage: 140,(INTERVAL :1 DAYS)
     Route: 048
     Dates: start: 2016, end: 20180307
  8. VALIUM [Concomitant]
     Active Substance: DIAZEPAM
     Indication: EPILEPSY
     Dosage: 40 MILLIGRAM,10 MG: 1X4 DAY,(INTERVAL :1 DAYS)
     Route: 048
     Dates: start: 2015
  9. LAMICTAL [Concomitant]
     Active Substance: LAMOTRIGINE
     Indication: EPILEPSY
     Dosage: 400 MILLIGRAM,2?0?2? ? 100 MG TABLE,(INTERVAL :1 DAYS)
     Route: 048
     Dates: start: 2007

REACTIONS (1)
  - Colitis ischaemic [Not Recovered/Not Resolved]

NARRATIVE: CASE EVENT DATE: 20180307
